FAERS Safety Report 9795684 (Version 4)
Quarter: 2014Q2

REPORT INFORMATION
  Report Type: Spontaneous
  Country: US (occurrence: US)
  Receive Date: 20140103
  Receipt Date: 20140403
  Transmission Date: 20141212
  Serious: No
  Sender: FDA-Public Use
  Company Number: US-TEVA-454007USA

PATIENT
  Age: 74 Year
  Sex: Male
  Weight: 63.56 kg

DRUGS (5)
  1. NUVIGIL [Suspect]
     Indication: SOMNOLENCE
     Dosage: 150 TO 250 MG
  2. NUVIGIL [Suspect]
     Indication: DEPRESSED LEVEL OF CONSCIOUSNESS
  3. NUVIGIL [Suspect]
     Indication: DISTURBANCE IN ATTENTION
  4. OTHER UNSPECIFIED MEDICATIONS [Concomitant]
  5. PROZAC [Concomitant]

REACTIONS (4)
  - Headache [Recovering/Resolving]
  - Off label use [Unknown]
  - Drug ineffective [Unknown]
  - Fatigue [Unknown]
